FAERS Safety Report 11398848 (Version 1)
Quarter: 2015Q3

REPORT INFORMATION
  Report Type: Spontaneous
  Country: US (occurrence: US)
  Receive Date: 20150820
  Receipt Date: 20150820
  Transmission Date: 20151125
  Serious: No
  Sender: FDA-Public Use
  Company Number: US-009507513-1507USA013371

PATIENT
  Age: 27 Year
  Sex: Female

DRUGS (1)
  1. IMPLANON [Suspect]
     Active Substance: ETONOGESTREL
     Indication: CONTRACEPTION
     Dosage: DOSE REPORTED AS ^30^
     Route: 059

REACTIONS (8)
  - Depression [Unknown]
  - Non-consummation [Unknown]
  - Headache [Unknown]
  - Mood swings [Unknown]
  - Thrombosis [Unknown]
  - Adverse event [Unknown]
  - Alopecia [Unknown]
  - Weight increased [Unknown]

NARRATIVE: CASE EVENT DATE: 20141208
